FAERS Safety Report 4560966-6 (Version None)
Quarter: 2005Q1

REPORT INFORMATION
  Report Type: 
  Country: None (occurrence: None)
  Receive Date: 20050126
  Receipt Date: 20040407
  Transmission Date: 20050727
  Serious: No
  Sender: FDA-Public Use
  Company Number: US-BRISTOL-MYERS SQUIBB COMPANY-12554176

PATIENT
  Age: 50 Year
  Sex: Female
  Weight: 122 kg

DRUGS (4)
  1. GLUCOPHAGE [Suspect]
     Indication: DIABETES MELLITUS NON-INSULIN-DEPENDENT
     Route: 048
     Dates: start: 20010101, end: 20030101
  2. PRINIVIL [Concomitant]
  3. RITALIN [Concomitant]
  4. DIAZID [Concomitant]

REACTIONS (1)
  - ALOPECIA [None]
